FAERS Safety Report 10460179 (Version 1)
Quarter: 2014Q3

REPORT INFORMATION
  Report Type: Spontaneous
  Country: DE (occurrence: DE)
  Receive Date: 20140917
  Receipt Date: 20140917
  Transmission Date: 20150326
  Serious: Yes (Congenital Anomaly)
  Sender: FDA-Public Use
  Company Number: DE-TEVA-507472GER

PATIENT
  Age: 1 Day
  Sex: Male

DRUGS (9)
  1. VALSARTAN. [Suspect]
     Active Substance: VALSARTAN
     Route: 064
  2. NEPRESOL [Concomitant]
     Active Substance: DIHYDRALAZINE SULFATE
     Route: 064
  3. METOPROLOL [Suspect]
     Active Substance: METOPROLOL
     Route: 064
  4. THYROXIN [Concomitant]
     Active Substance: LEVOTHYROXINE
     Route: 064
  5. FOLIO [Concomitant]
     Active Substance: FOLIC ACID
     Route: 064
  6. HYDROCHLOROTHIAZID [Suspect]
     Active Substance: HYDROCHLOROTHIAZIDE
     Route: 064
  7. METHYLDOPA. [Concomitant]
     Active Substance: METHYLDOPA
     Route: 064
  8. NOVORAPID [Concomitant]
     Active Substance: INSULIN ASPART
     Route: 064
  9. DIAZEPAM. [Concomitant]
     Active Substance: DIAZEPAM
     Route: 064

REACTIONS (6)
  - Atrial septal defect [Not Recovered/Not Resolved]
  - Pulmonary valve stenosis congenital [Not Recovered/Not Resolved]
  - Hypoacusis [Not Recovered/Not Resolved]
  - Hypospadias [Not Recovered/Not Resolved]
  - Patent ductus arteriosus [Recovered/Resolved with Sequelae]
  - Ventricular septal defect [Recovering/Resolving]

NARRATIVE: CASE EVENT DATE: 20130619
